FAERS Safety Report 9828456 (Version 1)
Quarter: 2013Q4

REPORT INFORMATION
  Report Type: Spontaneous
  Country: US (occurrence: None)
  Receive Date: 20131120
  Receipt Date: 20131120
  Transmission Date: 20140711
  Serious: Yes (Other)
  Sender: FDA-Public Use
  Company Number: 1000050241

PATIENT
  Sex: Female

DRUGS (3)
  1. VIIBRYD [Suspect]
     Indication: DEPRESSION
  2. VIIBRYD [Suspect]
     Indication: ANXIETY
  3. TRAZODONE (TRAZODONE) (TRAZODONE) [Concomitant]

REACTIONS (3)
  - Nausea [None]
  - Muscle spasms [None]
  - Somnolence [None]
